FAERS Safety Report 12228697 (Version 2)
Quarter: 2016Q3

REPORT INFORMATION
  Report Type: Spontaneous
  Country: US (occurrence: US)
  Receive Date: 20160401
  Receipt Date: 20160912
  Transmission Date: 20161109
  Serious: Yes (Hospitalization)
  Sender: FDA-Public Use
  Company Number: US-JNJFOC-20160302530

PATIENT
  Age: 35 Year
  Sex: Female

DRUGS (2)
  1. XARELTO [Suspect]
     Active Substance: RIVAROXABAN
     Indication: PORTAL VEIN THROMBOSIS
     Dosage: 15 MG AND 20 MG
     Route: 048
     Dates: start: 20150623, end: 20150810
  2. OXYCODONE [Concomitant]
     Active Substance: OXYCODONE
     Route: 065

REACTIONS (1)
  - Haemorrhagic ovarian cyst [Recovered/Resolved]

NARRATIVE: CASE EVENT DATE: 20150716
